FAERS Safety Report 9667667 (Version 2)
Quarter: 2013Q4

REPORT INFORMATION
  Report Type: Spontaneous
  Country: US (occurrence: US)
  Receive Date: 20131104
  Receipt Date: 20131104
  Transmission Date: 20140711
  Serious: Yes (Hospitalization, Other)
  Sender: FDA-Public Use
  Company Number: US-B.I. PHARMACEUTICALS,INC./RIDGEFIELD-2013-BI-17935BP

PATIENT
  Age: 53 Year
  Sex: Male
  Weight: 108.86 kg

DRUGS (10)
  1. PRADAXA [Suspect]
     Indication: ATRIAL FIBRILLATION
     Dosage: 300 MG
     Route: 048
     Dates: start: 20101221, end: 20120711
  2. CITALOPRAM [Concomitant]
     Dosage: 20 MG
     Route: 048
  3. POTASSIUM CHLORIDE [Concomitant]
     Dosage: 40 MEQ
     Route: 048
  4. TORSEMIDE [Concomitant]
     Route: 048
  5. AMIODARONE [Concomitant]
     Route: 048
  6. LOVASTATIN [Concomitant]
     Dosage: 50 MG
     Route: 048
  7. ASPIRIN [Concomitant]
     Dosage: 81 MG
     Route: 048
  8. ALPRAZOLAM [Concomitant]
     Indication: ANXIETY
     Route: 048
  9. PEPCID [Concomitant]
     Dosage: 40 MG
     Route: 048
  10. NITROGLYCERIN [Concomitant]
     Indication: CHEST PAIN
     Route: 060

REACTIONS (3)
  - Acute myocardial infarction [Unknown]
  - Haemorrhagic anaemia [Unknown]
  - Gastrointestinal haemorrhage [Unknown]
